FAERS Safety Report 23197743 (Version 2)
Quarter: 2023Q4

REPORT INFORMATION
  Report Type: Report from Study
  Country: US (occurrence: US)
  Receive Date: 20231117
  Receipt Date: 20231215
  Transmission Date: 20240110
  Serious: Yes (Other)
  Sender: FDA-Public Use
  Company Number: US-JNJFOC-20231033828

PATIENT

DRUGS (1)
  1. SPRAVATO [Suspect]
     Active Substance: ESKETAMINE
     Indication: Depression
     Dosage: RECENT ADMINISTERED DOSE 84 MG WEEKLY ON 30-NOV-2023.
     Dates: end: 20231102

REACTIONS (9)
  - Paralysis [Recovered/Resolved]
  - Feelings of worthlessness [Unknown]
  - Self esteem decreased [Unknown]
  - Grief reaction [Unknown]
  - Attention deficit hyperactivity disorder [Unknown]
  - Muscle twitching [Unknown]
  - Synaesthesia [Unknown]
  - Abnormal dreams [Unknown]
  - Anxiety [Unknown]

NARRATIVE: CASE EVENT DATE: 20231026
